FAERS Safety Report 4465747-X (Version None)
Quarter: 2004Q3

REPORT INFORMATION
  Report Type: 
  Country: None (occurrence: None)
  Receive Date: 20040929
  Receipt Date: 20040929
  Transmission Date: 20050211
  Serious: Yes (Death)
  Sender: FDA-Public Use
  Company Number: None

PATIENT
  Age: 15 Year
  Sex: Male
  Weight: 68.0396 kg

DRUGS (1)
  1. ZOLOFT [Suspect]
     Indication: SOCIAL PHOBIA
     Dosage: 50 MG DAILY ORAL
     Route: 048
     Dates: start: 20040503, end: 20040610

REACTIONS (1)
  - COMPLETED SUICIDE [None]
